FAERS Safety Report 17080089 (Version 1)
Quarter: 2019Q4

REPORT INFORMATION
  Report Type: Spontaneous
  Country: US (occurrence: US)
  Receive Date: 20191029
  Receipt Date: 20191029
  Transmission Date: 20200122
  Serious: Yes (Other)
  Sender: FDA-Public Use
  Company Number: None

PATIENT
  Age: 58 Year
  Sex: Female

DRUGS (29)
  1. VITAMIN D3 [Concomitant]
     Active Substance: CHOLECALCIFEROL
  2. TIZANIDINE. [Concomitant]
     Active Substance: TIZANIDINE
  3. CALCITRATE [Concomitant]
     Active Substance: CALCIUM CITRATE
  4. GABAPENTIN. [Concomitant]
     Active Substance: GABAPENTIN
  5. IBU [Concomitant]
     Active Substance: IBUPROFEN
  6. IBUPROFEN. [Concomitant]
     Active Substance: IBUPROFEN
  7. LAMOTRIGINE. [Concomitant]
     Active Substance: LAMOTRIGINE
  8. SUCRALAFATE [Concomitant]
  9. CALCIUM [Concomitant]
     Active Substance: CALCIUM
  10. CARISOPRODOL. [Concomitant]
     Active Substance: CARISOPRODOL
  11. LAMICTAL [Concomitant]
     Active Substance: LAMOTRIGINE
  12. MULTIVITAMIN [Concomitant]
     Active Substance: VITAMINS
  13. TYLENOL [Concomitant]
     Active Substance: ACETAMINOPHEN
  14. DICYCLOMINE [Concomitant]
     Active Substance: DICYCLOMINE HYDROCHLORIDE
  15. FAMOTIDINE. [Concomitant]
     Active Substance: FAMOTIDINE
  16. VITAMIN B12 [Concomitant]
     Active Substance: CYANOCOBALAMIN
  17. VITAMIN D2 [Concomitant]
     Active Substance: ERGOCALCIFEROL
  18. BUPROPION. [Concomitant]
     Active Substance: BUPROPION
  19. CALCIUM+D3 [Concomitant]
  20. DILTIAZEM. [Concomitant]
     Active Substance: DILTIAZEM
  21. NYSTOP [Concomitant]
     Active Substance: NYSTATIN
  22. ORENCIA [Suspect]
     Active Substance: ABATACEPT
     Indication: RHEUMATOID ARTHRITIS
     Dosage: ?          OTHER DOSE:1 SYRINGE;?
     Route: 058
     Dates: start: 20150606
  23. ALBUTEROL. [Concomitant]
     Active Substance: ALBUTEROL
  24. ENULOSE [Concomitant]
     Active Substance: LACTULOSE
  25. LORATADINE. [Concomitant]
     Active Substance: LORATADINE
  26. METHYLPRED [Concomitant]
     Active Substance: METHYLPREDNISOLONE
  27. OMEPRAZOLE. [Concomitant]
     Active Substance: OMEPRAZOLE
  28. PROAIR HFA [Concomitant]
     Active Substance: ALBUTEROL SULFATE
  29. SYNTHROID [Concomitant]
     Active Substance: LEVOTHYROXINE SODIUM

REACTIONS (2)
  - Therapy cessation [None]
  - Surgery [None]

NARRATIVE: CASE EVENT DATE: 20191002
